FAERS Safety Report 17163217 (Version 1)
Quarter: 2019Q4

REPORT INFORMATION
  Report Type: Spontaneous
  Country: DK (occurrence: DK)
  Receive Date: 20191217
  Receipt Date: 20191217
  Transmission Date: 20200122
  Serious: Yes (Hospitalization)
  Sender: FDA-Public Use
  Company Number: DK-ACCORD-165702

PATIENT
  Age: 49 Year
  Sex: Male

DRUGS (5)
  1. IMUREL [Interacting]
     Active Substance: AZATHIOPRINE SODIUM
     Indication: PROPHYLAXIS AGAINST TRANSPLANT REJECTION
     Dosage: STRENGTH: 50
     Route: 048
     Dates: start: 20190905
  2. ENALAPRIL SANDOZ [Concomitant]
     Active Substance: ENALAPRIL
     Indication: HYPERTENSION
     Dosage: STRENGTH: 10 MG
     Route: 048
     Dates: start: 20190107
  3. DOXAZOSIN ORIFARM [Concomitant]
     Indication: HYPERTENSION
     Dosage: STRENGTH: 4 MG
     Route: 048
     Dates: start: 20180326
  4. ALLOPURINOL. [Suspect]
     Active Substance: ALLOPURINOL
     Indication: GOUT
     Dosage: STRENGTH: 100 MG
     Route: 048
     Dates: start: 20190302, end: 20190320
  5. METOPROLOLSUCCINAT HEXAL [Concomitant]
     Active Substance: METOPROLOL SUCCINATE
     Indication: HYPERTENSION
     Dosage: STRENGTH: 100 MG
     Route: 048
     Dates: start: 20140605

REACTIONS (3)
  - Labelled drug-drug interaction medication error [Unknown]
  - Drug interaction [Unknown]
  - Pancytopenia [Not Recovered/Not Resolved]

NARRATIVE: CASE EVENT DATE: 201909
